FAERS Safety Report 6243565-X (Version None)
Quarter: 2009Q2

REPORT INFORMATION
  Report Type: 
  Country: None (occurrence: None)
  Receive Date: 20090624
  Receipt Date: 20090622
  Transmission Date: 20091009
  Serious: Yes (Other)
  Sender: FDA-Public Use
  Company Number: FR-JNJFOC-20081205327

PATIENT
  Age: 24 Year
  Sex: Female

DRUGS (19)
  1. IMODIUM [Suspect]
     Indication: DRUG USE FOR UNKNOWN INDICATION
     Route: 065
  2. CONTRAMAL [Suspect]
     Indication: DRUG USE FOR UNKNOWN INDICATION
  3. TRAVANIC [Suspect]
     Indication: DRUG USE FOR UNKNOWN INDICATION
  4. ARACYTINE [Suspect]
  5. ARACYTINE [Suspect]
     Indication: LEUKAEMIA
  6. CERUBIDINE [Suspect]
     Indication: LEUKAEMIA
  7. TAZOCILLINE [Suspect]
     Indication: PYREXIA
  8. VANCOMYCINE [Suspect]
     Indication: PYREXIA
  9. PLITICAN [Suspect]
     Indication: DRUG USE FOR UNKNOWN INDICATION
  10. SPASFON [Suspect]
     Indication: DRUG USE FOR UNKNOWN INDICATION
  11. DEBRIDAT [Suspect]
     Indication: DRUG USE FOR UNKNOWN INDICATION
  12. PRIMPERAN [Suspect]
     Indication: DRUG USE FOR UNKNOWN INDICATION
  13. ACETAMINOPHEN [Suspect]
     Indication: DRUG USE FOR UNKNOWN INDICATION
  14. ECONAZOLE NITRATE [Suspect]
     Indication: DRUG USE FOR UNKNOWN INDICATION
  15. ACUPAN [Suspect]
     Indication: DRUG USE FOR UNKNOWN INDICATION
  16. ALUMINUM HYDROXIDE AND MAGNESIUM TRISILICATE [Suspect]
     Indication: DRUG USE FOR UNKNOWN INDICATION
  17. AMIKACIN [Suspect]
     Indication: DRUG USE FOR UNKNOWN INDICATION
  18. TARGOCID [Suspect]
     Indication: DRUG USE FOR UNKNOWN INDICATION
  19. ATARAX [Suspect]
     Indication: DRUG USE FOR UNKNOWN INDICATION

REACTIONS (2)
  - DRUG EXPOSURE DURING PREGNANCY [None]
  - PREMATURE BABY [None]
